FAERS Safety Report 5261733-0 (Version None)
Quarter: 2007Q1

REPORT INFORMATION
  Report Type: 
  Country: None (occurrence: None)
  Receive Date: 20070307
  Receipt Date: 20070227
  Transmission Date: 20070707
  Serious: Yes (Life-Threatening)
  Sender: FDA-Public Use
  Company Number: 2007US000448

PATIENT

DRUGS (14)
  1. ADENOSCAN [Suspect]
     Indication: SCAN MYOCARDIAL PERFUSION
     Dosage: 120 RK/MIN, IV NOS
     Route: 042
     Dates: start: 20070208, end: 20070208
  2. LANSOPRAZOLE [Concomitant]
  3. METHYLDOPA [Concomitant]
  4. NICORANDIL (NICORANDIL) [Concomitant]
  5. ISOSORBIDE DINITRATE [Concomitant]
  6. NIFEDIPINE [Concomitant]
  7. BROTIZOLAM (BROTIZOLAM) [Concomitant]
  8. FUROSEMIDE [Concomitant]
  9. ALLOPURINOL [Concomitant]
  10. BIFIDOBACTERIUM BIFIDUM (BIFIDOBACTERIUM BIFIDUM) [Concomitant]
  11. SODIUM BICARBONATE IN PLASTIC CONTAINER [Concomitant]
  12. LOPERAMIDE [Concomitant]
  13. ACETAMINOPHEN [Concomitant]
  14. ASPIRIN [Concomitant]

REACTIONS (2)
  - ELECTROCARDIOGRAM PQ INTERVAL PROLONGED [None]
  - SHOCK [None]
